FAERS Safety Report 15314731 (Version 1)
Quarter: 2018Q3

REPORT INFORMATION
  Report Type: Spontaneous
  Country: US (occurrence: US)
  Receive Date: 20180815
  Receipt Date: 20180815
  Transmission Date: 20181010
  Serious: Yes (Hospitalization)
  Sender: FDA-Public Use
  Company Number: None

PATIENT
  Age: 72 Year
  Sex: Female

DRUGS (31)
  1. ALLERGY CAP [Concomitant]
  2. ATENOLOL. [Concomitant]
     Active Substance: ATENOLOL
  3. PROVENTIL [Concomitant]
     Active Substance: ALBUTEROL
  4. CROMOLYN [Concomitant]
     Active Substance: CROMOLYN
  5. QVAR [Concomitant]
     Active Substance: BECLOMETHASONE DIPROPIONATE
  6. SYNTHROID [Concomitant]
     Active Substance: LEVOTHYROXINE SODIUM
  7. CLOBETASOL [Concomitant]
     Active Substance: CLOBETASOL
  8. DOXYCYC MONO [Concomitant]
     Active Substance: DOXYCYCLINE
  9. FUROSEMIDE. [Concomitant]
     Active Substance: FUROSEMIDE
  10. IDAPAMIDE [Concomitant]
  11. KLOR?CON [Concomitant]
     Active Substance: POTASSIUM CHLORIDE
  12. NYSTATIN. [Concomitant]
     Active Substance: NYSTATIN
  13. ESTAZOLAM. [Concomitant]
     Active Substance: ESTAZOLAM
  14. LEVOTHYROXINE. [Concomitant]
     Active Substance: LEVOTHYROXINE
  15. MECLIZINE [Concomitant]
     Active Substance: MECLIZINE HYDROCHLORIDE
  16. TESTOSTERONE. [Concomitant]
     Active Substance: TESTOSTERONE
  17. VITAMIN D [Concomitant]
     Active Substance: CHOLECALCIFEROL
  18. WELLBUTRIN [Concomitant]
     Active Substance: BUPROPION HYDROCHLORIDE
  19. AUG BETAMET [Concomitant]
  20. AMLODIPINE [Concomitant]
     Active Substance: AMLODIPINE BESYLATE
  21. CLINDAMYCIN. [Concomitant]
     Active Substance: CLINDAMYCIN
  22. TALTZ [Suspect]
     Active Substance: IXEKIZUMAB
     Indication: PSORIATIC ARTHROPATHY
     Route: 058
     Dates: start: 20180523
  23. BUPROPION. [Concomitant]
     Active Substance: BUPROPION
  24. DOVONEX [Concomitant]
     Active Substance: CALCIPOTRIENE
  25. GABAPENTIN. [Concomitant]
     Active Substance: GABAPENTIN
  26. METOPROLOL. [Concomitant]
     Active Substance: METOPROLOL
  27. NASONEX [Concomitant]
     Active Substance: MOMETASONE FUROATE
  28. AMITRIPTYLIN [Concomitant]
     Active Substance: AMITRIPTYLINE
  29. ENBREL [Concomitant]
     Active Substance: ETANERCEPT
  30. HYDROCO/APAP [Concomitant]
     Active Substance: ACETAMINOPHEN\HYDROCODONE
  31. TEMAZEPAM. [Concomitant]
     Active Substance: TEMAZEPAM

REACTIONS (3)
  - Injection site swelling [None]
  - Burning sensation [None]
  - Injection site pain [None]

NARRATIVE: CASE EVENT DATE: 20180721
